FAERS Safety Report 4955300-3 (Version None)
Quarter: 2006Q1

REPORT INFORMATION
  Report Type: 
  Country: None (occurrence: None)
  Receive Date: 20060328
  Receipt Date: 20040901
  Transmission Date: 20060701
  Serious: Yes (Hospitalization)
  Sender: FDA-Public Use
  Company Number: DE-BRISTOL-MYERS SQUIBB COMPANY-13309224

PATIENT
  Age: 41 Year
  Sex: Male
  Weight: 79 kg

DRUGS (20)
  1. SUSTIVA [Suspect]
     Indication: HIV INFECTION
     Dates: start: 20031001, end: 20040101
  2. ZERIT [Suspect]
     Indication: HIV INFECTION
     Dates: start: 20020801, end: 20030901
  3. VIDEX [Suspect]
     Indication: HIV INFECTION
     Dates: start: 20030904, end: 20030910
  4. VIDEX [Suspect]
     Dates: start: 20040128
  5. REYATAZ [Suspect]
     Indication: HIV INFECTION
     Dates: start: 20030904, end: 20030910
  6. ZOVIRAX [Concomitant]
  7. TRIZIVIR [Concomitant]
     Indication: HIV INFECTION
     Dates: start: 20020401, end: 20020801
  8. PEG-INTRON [Concomitant]
     Indication: HIV INFECTION
     Route: 058
     Dates: start: 20020501, end: 20020801
  9. ZIAGEN [Concomitant]
     Indication: HIV INFECTION
     Dates: start: 20020801, end: 20030901
  10. EPIVIR [Concomitant]
     Indication: HIV INFECTION
     Dates: start: 20020801, end: 20030901
  11. PREDNISONE [Concomitant]
     Indication: DRUG ERUPTION
     Dates: start: 20031001
  12. VIREAD [Concomitant]
     Indication: HIV INFECTION
     Dates: start: 20030904, end: 20030910
  13. NORVIR [Concomitant]
     Indication: HIV INFECTION
     Dates: start: 20030903, end: 20030910
  14. VIRAMUNE [Concomitant]
     Indication: HIV INFECTION
     Dates: start: 20030910, end: 20031001
  15. VIRAMUNE [Concomitant]
     Dates: start: 20031001
  16. ZIDOVUDINE [Concomitant]
     Indication: HIV INFECTION
     Dates: start: 20040128
  17. KALETRA [Concomitant]
     Indication: HIV INFECTION
     Dates: start: 20040128
  18. ACETAMINOPHEN [Concomitant]
  19. IBUPROFEN [Concomitant]
     Indication: BACK PAIN
     Dates: start: 20030901
  20. RED BLOOD CELLS [Concomitant]
     Dates: start: 20021101

REACTIONS (16)
  - ABSCESS [None]
  - ANAEMIA [None]
  - APPENDICITIS PERFORATED [None]
  - CHILLS [None]
  - DRUG ERUPTION [None]
  - GENERAL PHYSICAL HEALTH DETERIORATION [None]
  - HEPATIC STEATOSIS [None]
  - JAUNDICE [None]
  - LIPOATROPHY [None]
  - LIPODYSTROPHY ACQUIRED [None]
  - OEDEMA [None]
  - PRURITUS [None]
  - PYREXIA [None]
  - RASH [None]
  - SWELLING FACE [None]
  - VIRAL LOAD INCREASED [None]
